FAERS Safety Report 9274606 (Version 4)
Quarter: 2013Q3

REPORT INFORMATION
  Report Type: Spontaneous
  Country: US (occurrence: None)
  Receive Date: 20130429
  Receipt Date: 20130710
  Transmission Date: 20140515
  Serious: Yes (Hospitalization)
  Sender: FDA-Public Use
  Company Number: JK968

PATIENT
  Age: 73 Year
  Sex: Male

DRUGS (4)
  1. RICOLA COUGH DROPS [Suspect]
     Indication: OROPHARYNGEAL PAIN
     Dosage: COUGH DROPS
     Route: 048
  2. RICOLA COUGH DROPS [Suspect]
     Indication: ORAL PAIN
     Dosage: COUGH DROPS
     Route: 048
  3. CHERATUSSIN AC [Concomitant]
  4. VICODIN [Concomitant]

REACTIONS (1)
  - Hallucination [None]
